FAERS Safety Report 10779092 (Version 1)
Quarter: 2015Q1

REPORT INFORMATION
  Report Type: Spontaneous
  Country: US (occurrence: US)
  Receive Date: 20150210
  Receipt Date: 20150210
  Transmission Date: 20150721
  Serious: Yes (Death)
  Sender: FDA-Public Use
  Company Number: US-JNJFOC-20150119927

PATIENT
  Sex: Female
  Weight: 69.4 kg

DRUGS (5)
  1. LEVOPHED [Suspect]
     Active Substance: NOREPINEPHRINE BITARTRATE
     Indication: PRODUCT USED FOR UNKNOWN INDICATION
     Route: 042
     Dates: start: 201403
  2. AMIODARONE [Concomitant]
     Active Substance: AMIODARONE
     Indication: HYPERTENSION
     Route: 065
  3. LEVAQUIN [Suspect]
     Active Substance: LEVOFLOXACIN
     Indication: ACCIDENTAL EXPOSURE TO PRODUCT
     Route: 042
     Dates: start: 201403
  4. AMIODARONE [Concomitant]
     Active Substance: AMIODARONE
     Indication: CARDIAC DISORDER
     Route: 065
  5. LISINOPRIL. [Concomitant]
     Active Substance: LISINOPRIL
     Indication: HYPERTENSION
     Route: 065

REACTIONS (2)
  - Death [Fatal]
  - Accidental exposure to product [Unknown]
